FAERS Safety Report 20907583 (Version 3)
Quarter: 2022Q2

REPORT INFORMATION
  Report Type: Spontaneous
  Country: MX (occurrence: MX)
  Receive Date: 20220602
  Receipt Date: 20220624
  Transmission Date: 20220721
  Serious: Yes (Death, Other)
  Sender: FDA-Public Use
  Company Number: MX-BAYER-2022P003810

PATIENT
  Age: 61 Year
  Sex: Male

DRUGS (1)
  1. LAROTRECTINIB [Suspect]
     Active Substance: LAROTRECTINIB
     Indication: Glioblastoma
     Dosage: 100 MG, QD
     Route: 048
     Dates: start: 20220204, end: 20220516

REACTIONS (2)
  - Status epilepticus [Fatal]
  - Glioblastoma [Fatal]

NARRATIVE: CASE EVENT DATE: 20220511
